FAERS Safety Report 8449814-1 (Version None)
Quarter: 2012Q2

REPORT INFORMATION
  Report Type: 
  Country: None (occurrence: None)
  Receive Date: 20120620
  Receipt Date: 20120607
  Transmission Date: 20120825
  Serious: Yes (Hospitalization)
  Sender: FDA-Public Use
  Company Number: US-ELI_LILLY_AND_COMPANY-US201206002953

PATIENT
  Age: 40 Year
  Sex: Male

DRUGS (3)
  1. OTHER ANTIHYPERTENSIVES [Concomitant]
  2. CYMBALTA [Suspect]
     Dosage: 180 MG, QD
  3. CYMBALTA [Suspect]
     Indication: DEPRESSION
     Dosage: 160 MG, QD

REACTIONS (2)
  - OVERDOSE [None]
  - ACUTE PSYCHOSIS [None]
